FAERS Safety Report 18009557 (Version 1)
Quarter: 2020Q3

REPORT INFORMATION
  Report Type: Spontaneous
  Country: US (occurrence: US)
  Receive Date: 20200710
  Receipt Date: 20200710
  Transmission Date: 20201103
  Serious: No
  Sender: FDA-Public Use
  Company Number: US-009507513-2007USA002915

PATIENT
  Sex: Female

DRUGS (3)
  1. FOLLISTIM AQ [Suspect]
     Active Substance: FOLLITROPIN
     Dosage: 150 U DAILY
     Route: 058
  2. FOLLISTIM AQ [Suspect]
     Active Substance: FOLLITROPIN
     Indication: INFERTILITY FEMALE
     Dosage: 150 U DAILY
     Route: 058
  3. FOLLISTIM AQ [Suspect]
     Active Substance: FOLLITROPIN

REACTIONS (1)
  - Product storage error [Unknown]
